FAERS Safety Report 6824408-X (Version None)
Quarter: 2010Q3

REPORT INFORMATION
  Report Type: 
  Country: None (occurrence: None)
  Receive Date: 20100708
  Receipt Date: 20061023
  Transmission Date: 20110219
  Serious: No
  Sender: FDA-Public Use
  Company Number: US-PFIZER INC-2006131675

PATIENT
  Sex: Male

DRUGS (3)
  1. CHANTIX [Suspect]
  2. COREG [Concomitant]
  3. PLAVIX [Concomitant]

REACTIONS (2)
  - DIZZINESS [None]
  - SOMNOLENCE [None]
